FAERS Safety Report 12314479 (Version 4)
Quarter: 2016Q4

REPORT INFORMATION
  Report Type: Spontaneous
  Country: US (occurrence: US)
  Receive Date: 20160428
  Receipt Date: 20161104
  Transmission Date: 20170207
  Serious: No
  Sender: FDA-Public Use
  Company Number: US-GLAXOSMITHKLINE-US2016GSK046167

PATIENT
  Sex: Female

DRUGS (1)
  1. SUMATRIPTAN SOLUTION FOR INJECTION IN PRE-FILLED PEN [Suspect]
     Active Substance: SUMATRIPTAN
     Indication: MIGRAINE
     Dosage: 6 MG, U
     Route: 030
     Dates: start: 20151022

REACTIONS (4)
  - Accidental exposure to product [Unknown]
  - Product quality issue [Unknown]
  - Migraine [Not Recovered/Not Resolved]
  - Drug dose omission [Unknown]
